FAERS Safety Report 17948954 (Version 1)
Quarter: 2020Q2

REPORT INFORMATION
  Report Type: Spontaneous
  Country: US (occurrence: US)
  Receive Date: 20200625
  Receipt Date: 20200625
  Transmission Date: 20200714
  Serious: No
  Sender: FDA-Public Use
  Company Number: US-ROCHE-2374554

PATIENT
  Sex: Male
  Weight: 72.64 kg

DRUGS (1)
  1. KLONOPIN [Suspect]
     Active Substance: CLONAZEPAM
     Indication: PROPHYLAXIS
     Route: 065

REACTIONS (1)
  - Somnolence [Unknown]
